FAERS Safety Report 25433493 (Version 1)
Quarter: 2025Q2

REPORT INFORMATION
  Report Type: Spontaneous
  Country: PL (occurrence: PL)
  Receive Date: 20250613
  Receipt Date: 20250613
  Transmission Date: 20250716
  Serious: Yes (Other)
  Sender: RANBAXY
  Company Number: PL-SUN PHARMACEUTICAL INDUSTRIES INC-2025R1-511691

PATIENT
  Age: 73 Year
  Sex: Female

DRUGS (2)
  1. LITHIUM [Suspect]
     Active Substance: LITHIUM
     Indication: Mania
     Dosage: 100 MILLIGRAM
     Route: 065
  2. LITHIUM [Suspect]
     Active Substance: LITHIUM
     Dosage: 750 MILLIGRAM, DAILY
     Route: 065

REACTIONS (2)
  - Chronic kidney disease [Unknown]
  - Therapeutic response decreased [Unknown]
